FAERS Safety Report 8465683-8 (Version None)
Quarter: 2012Q2

REPORT INFORMATION
  Report Type: 
  Country: None (occurrence: None)
  Receive Date: 20120626
  Receipt Date: 20120618
  Transmission Date: 20120825
  Serious: Yes (Hospitalization)
  Sender: FDA-Public Use
  Company Number: CA-EISAI INC-E7389-02417-CLI-CA

PATIENT
  Sex: Female
  Weight: 54 kg

DRUGS (7)
  1. CLOBAZAM [Concomitant]
     Indication: PROPHYLAXIS
     Route: 048
  2. DOCUSATE [Concomitant]
     Indication: CONSTIPATION
     Route: 048
  3. EPIRUBICIN HYDROCHLORIDE [Suspect]
     Route: 041
     Dates: start: 20120509
  4. DILANTIN [Concomitant]
     Indication: PROPHYLAXIS
     Route: 048
  5. EPIRUBICIN HYDROCHLORIDE [Suspect]
     Route: 041
     Dates: start: 20120425, end: 20120502
  6. CODEINE SULFATE [Concomitant]
     Indication: COUGH
     Dosage: 15-30EC
     Route: 048
     Dates: start: 20120525
  7. POTASSIUM CHLORIDE [Concomitant]
     Route: 048
     Dates: start: 20120523

REACTIONS (2)
  - PNEUMONIA [None]
  - PLEURAL EFFUSION [None]
